FAERS Safety Report 6454057-7 (Version None)
Quarter: 2009Q4

REPORT INFORMATION
  Report Type: 
  Country: None (occurrence: None)
  Receive Date: 20091124
  Receipt Date: 20091118
  Transmission Date: 20100525
  Serious: Yes (Other)
  Sender: FDA-Public Use
  Company Number: B0600803A

PATIENT
  Sex: Female

DRUGS (4)
  1. RELENZA [Suspect]
     Indication: INFLUENZA
     Dosage: 10MG TWICE PER DAY
     Route: 055
     Dates: start: 20091027, end: 20091028
  2. MEDICON [Concomitant]
     Dosage: 18 PER DAY
     Route: 048
  3. MUCOSOLVAN [Concomitant]
     Dosage: 1 PER DAY
     Route: 048
  4. CALONAL [Concomitant]
     Route: 048

REACTIONS (6)
  - FEELING ABNORMAL [None]
  - HALLUCINATION, AUDITORY [None]
  - HALLUCINATION, VISUAL [None]
  - HYPERHIDROSIS [None]
  - TINNITUS [None]
  - VISION BLURRED [None]
